FAERS Safety Report 6762448-X (Version None)
Quarter: 2010Q2

REPORT INFORMATION
  Report Type: 
  Country: None (occurrence: None)
  Receive Date: 20100609
  Receipt Date: 20100528
  Transmission Date: 20101027
  Serious: Yes (Other)
  Sender: FDA-Public Use
  Company Number: US-ELI_LILLY_AND_COMPANY-US201006001573

PATIENT
  Age: 58 Year
  Sex: Female

DRUGS (4)
  1. CYMBALTA [Suspect]
     Indication: ANXIETY
     Dosage: 90 MG, DAILY (1/D)
  2. ZOCOR [Concomitant]
  3. LISINOPRIL [Concomitant]
  4. GLUCOVANCE [Concomitant]

REACTIONS (1)
  - RETINAL HAEMORRHAGE [None]
